FAERS Safety Report 22260720 (Version 2)
Quarter: 2023Q2

REPORT INFORMATION
  Report Type: Report from Study
  Country: CA (occurrence: CA)
  Receive Date: 20230427
  Receipt Date: 20230509
  Transmission Date: 20230721
  Serious: Yes (Other)
  Sender: FDA-Public Use
  Company Number: CA-GLAXOSMITHKLINE-CA2023042524

PATIENT

DRUGS (2)
  1. MEPOLIZUMAB [Suspect]
     Active Substance: MEPOLIZUMAB
     Indication: Asthma
     Dosage: 100 MG, Q4W
     Route: 058
     Dates: start: 20180424
  2. MEPOLIZUMAB [Suspect]
     Active Substance: MEPOLIZUMAB
     Dosage: 100 MG, Q4W
     Route: 058
     Dates: start: 20180424

REACTIONS (10)
  - Dementia [Not Recovered/Not Resolved]
  - Lower respiratory tract infection [Unknown]
  - Asthma [Unknown]
  - Dyspnoea [Unknown]
  - Hyperhidrosis [Unknown]
  - Coronavirus infection [Unknown]
  - Memory impairment [Not Recovered/Not Resolved]
  - Condition aggravated [Unknown]
  - Confusional state [Unknown]
  - Product dose omission issue [Unknown]
